FAERS Safety Report 8818168 (Version 1)
Quarter: 2012Q4

REPORT INFORMATION
  Report Type: 
  Country: US (occurrence: US)
  Receive Date: 20121001
  Receipt Date: 20121001
  Transmission Date: 20130627
  Serious: Yes (Hospitalization, Other)
  Sender: FDA-Public Use
  Company Number: US-ELI_LILLY_AND_COMPANY-US201209005147

PATIENT
  Sex: Male

DRUGS (7)
  1. CYMBALTA [Suspect]
     Indication: DEPRESSION
     Dosage: 60 mg, qd
  2. CYMBALTA [Suspect]
     Dosage: 30 mg, qd
  3. CYMBALTA [Suspect]
     Dosage: 30 mg, qod
  4. NEXIUM [Concomitant]
  5. ADVAIR [Concomitant]
  6. OMEGA 3 [Concomitant]
  7. B-COMPLEX [Concomitant]

REACTIONS (14)
  - Cerebrovascular accident [Unknown]
  - Thrombosis [Recovered/Resolved]
  - Haemorrhage intracranial [Recovered/Resolved]
  - Headache [Unknown]
  - Dizziness [Unknown]
  - Intentional drug misuse [Unknown]
  - Drug withdrawal syndrome [Unknown]
  - Drug ineffective [Unknown]
  - Dysarthria [Unknown]
  - Visual impairment [Unknown]
  - Confusional state [Unknown]
  - Visual acuity reduced [Unknown]
  - Disturbance in attention [Unknown]
  - Aphasia [Unknown]
